FAERS Safety Report 25569108 (Version 1)
Quarter: 2025Q3

REPORT INFORMATION
  Report Type: Spontaneous
  Country: US (occurrence: US)
  Receive Date: 20250716
  Receipt Date: 20250716
  Transmission Date: 20251020
  Serious: No
  Sender: Alora Pharma
  Company Number: US-SUNNY-2025ALO00044

PATIENT
  Age: 83 Year
  Sex: Female
  Weight: 62.596 kg

DRUGS (5)
  1. NITROFURANTOIN [Suspect]
     Active Substance: NITROFURANTOIN
     Indication: Evidence based treatment
     Dosage: 100 MG, 2X/DAY
     Route: 048
     Dates: start: 20241230, end: 20250103
  2. LISINOPRIL [Concomitant]
     Active Substance: LISINOPRIL
  3. AMLODIPINE [Concomitant]
     Active Substance: AMLODIPINE BESYLATE
  4. LIPITOR [Concomitant]
     Active Substance: ATORVASTATIN CALCIUM
  5. PLAVIX [Concomitant]
     Active Substance: CLOPIDOGREL BISULFATE

REACTIONS (2)
  - Haemoglobin decreased [Recovered/Resolved]
  - Red blood cell count decreased [Recovering/Resolving]

NARRATIVE: CASE EVENT DATE: 20250110
